FAERS Safety Report 22270380 (Version 1)
Quarter: 2023Q2

REPORT INFORMATION
  Report Type: Spontaneous
  Country: US (occurrence: None)
  Receive Date: 20230428
  Receipt Date: 20230428
  Transmission Date: 20230722
  Serious: Yes (Other)
  Sender: FDA-Public Use
  Company Number: None

PATIENT
  Age: 63 Year
  Sex: Female

DRUGS (16)
  1. ENBREL [Suspect]
     Active Substance: ETANERCEPT
     Dosage: FREQUENCY : AS DIRECTED;?
     Route: 058
     Dates: start: 20210525
  2. ATORVASTATIN [Concomitant]
     Active Substance: ATORVASTATIN
  3. BENZONATATE [Concomitant]
     Active Substance: BENZONATATE
  4. BRIO ELLIPTA INH [Concomitant]
  5. DUPIXENT [Concomitant]
     Active Substance: DUPILUMAB
  6. ELIQUIS [Concomitant]
     Active Substance: APIXABAN
  7. FLECAINIDE [Concomitant]
     Active Substance: FLECAINIDE
  8. FLUTICASONE SPR [Concomitant]
  9. FOLIC ACID [Concomitant]
     Active Substance: FOLIC ACID
  10. LEVOTHYROXINE [Concomitant]
     Active Substance: LEVOTHYROXINE
  11. METHOTREXATE [Concomitant]
     Active Substance: METHOTREXATE
  12. METOPROLOL [Concomitant]
     Active Substance: METOPROLOL
  13. MONTELUKAST [Concomitant]
     Active Substance: MONTELUKAST SODIUM
  14. VENTOLIN HFA AER [Concomitant]
  15. ZYRTEC ALLGY [Concomitant]
  16. VITAMIN D [Concomitant]
     Active Substance: VITAMIN D NOS

REACTIONS (2)
  - Upper respiratory tract infection [None]
  - Cardiac pacemaker replacement [None]

NARRATIVE: CASE EVENT DATE: 20230320
